FAERS Safety Report 7626499-5 (Version None)
Quarter: 2011Q3

REPORT INFORMATION
  Report Type: 
  Country: None (occurrence: None)
  Receive Date: 20110721
  Receipt Date: 20110714
  Transmission Date: 20111222
  Serious: Yes (Hospitalization)
  Sender: FDA-Public Use
  Company Number: IT-ROCHE-785203

PATIENT
  Sex: Male

DRUGS (8)
  1. COUMADIN [Concomitant]
  2. EZETIMIBE [Concomitant]
  3. AMIODARONE HCL [Concomitant]
  4. LANSOPRAZOLE [Concomitant]
  5. AMLODIPINE [Concomitant]
  6. PALVIX [Concomitant]
  7. CELLCEPT [Suspect]
     Dosage: FREQUENCY:OD
     Route: 048
     Dates: start: 20030201, end: 20071006
  8. CYCLOSPORINE [Suspect]
     Dosage: FREQUENCY:OD
     Route: 048
     Dates: start: 20030201, end: 20071006

REACTIONS (2)
  - MYOCARDIAL INFARCTION [None]
  - DEVICE OCCLUSION [None]
